FAERS Safety Report 11521142 (Version 1)
Quarter: 2015Q3

REPORT INFORMATION
  Report Type: Spontaneous
  Country: US (occurrence: US)
  Receive Date: 20150918
  Receipt Date: 20150918
  Transmission Date: 20151125
  Serious: No
  Sender: FDA-Public Use
  Company Number: US-ROCHE-758456

PATIENT
  Age: 44 Year
  Sex: Male

DRUGS (2)
  1. COPEGUS [Suspect]
     Active Substance: RIBAVIRIN
     Indication: HEPATITIS C
     Dosage: FREQUENCY: 200MG X 2 (AM AND PM)
     Route: 048
     Dates: start: 20100703, end: 20110103
  2. PEGASYS [Suspect]
     Active Substance: PEGINTERFERON ALFA-2A
     Indication: HEPATITIS C
     Route: 065
     Dates: start: 20100703, end: 20110103

REACTIONS (5)
  - Nervousness [Unknown]
  - Dark circles under eyes [Not Recovered/Not Resolved]
  - Pyrexia [Unknown]
  - Emotional disorder [Unknown]
  - Fatigue [Unknown]

NARRATIVE: CASE EVENT DATE: 201101
